FAERS Safety Report 7371070-6 (Version None)
Quarter: 2011Q1

REPORT INFORMATION
  Report Type: 
  Country: None (occurrence: None)
  Receive Date: 20110225
  Receipt Date: 20110125
  Transmission Date: 20110831
  Serious: No
  Sender: FDA-Public Use
  Company Number: 322195

PATIENT
  Age: 51 Year
  Sex: Female

DRUGS (6)
  1. SIMVASTATIN [Concomitant]
  2. VICTOZA [Suspect]
     Indication: TYPE 2 DIABETES MELLITUS
     Dosage: SUBCUTANEOUS
     Route: 058
     Dates: start: 20101015
  3. VALTREX [Concomitant]
  4. CORTICOSTEROID NOS (CORTICOSTEROID NOS) [Concomitant]
  5. METFORMIN HCL [Concomitant]
  6. ORAVIG (MICONAZOLE) [Concomitant]

REACTIONS (2)
  - MOUTH ULCERATION [None]
  - WEIGHT DECREASED [None]
